FAERS Safety Report 23214150 (Version 4)
Quarter: 2024Q1

REPORT INFORMATION
  Report Type: Spontaneous
  Country: US (occurrence: US)
  Receive Date: 20231121
  Receipt Date: 20240105
  Transmission Date: 20240409
  Serious: No
  Sender: FDA-Public Use
  Company Number: US-PFIZER INC-202300370239

PATIENT
  Age: 67 Year
  Sex: Female
  Weight: 86.18 kg

DRUGS (3)
  1. CLINDAMYCIN PHOSPHATE [Suspect]
     Active Substance: CLINDAMYCIN PHOSPHATE
     Indication: Vaginal infection
     Dosage: 40 G (40 GRAMS WITH 7 APPLICATORS)
     Dates: start: 20231103
  2. CLINDAMYCIN PHOSPHATE [Suspect]
     Active Substance: CLINDAMYCIN PHOSPHATE
     Indication: Vulvovaginal mycotic infection
  3. CLINDAMYCIN HYDROCHLORIDE [Suspect]
     Active Substance: CLINDAMYCIN HYDROCHLORIDE
     Indication: Vulvovaginal mycotic infection
     Dosage: 300 MG, 2X/WEEK(300 MG CAPSULE; TAKE FOR 7 DAYS TWICE A DAY BY MOUTH)
     Route: 048

REACTIONS (3)
  - Product dose omission issue [Not Recovered/Not Resolved]
  - Drug ineffective for unapproved indication [Unknown]
  - Off label use [Unknown]

NARRATIVE: CASE EVENT DATE: 20231113
